FAERS Safety Report 23786447 (Version 1)
Quarter: 2024Q2

REPORT INFORMATION
  Report Type: Report from Study
  Country: CA (occurrence: CA)
  Receive Date: 20240426
  Receipt Date: 20240426
  Transmission Date: 20240716
  Serious: Yes (Other)
  Sender: FDA-Public Use
  Company Number: CA-GLAXOSMITHKLINE-CA2023119667

PATIENT

DRUGS (1)
  1. MEPOLIZUMAB [Suspect]
     Active Substance: MEPOLIZUMAB
     Indication: Asthma
     Dosage: 100 MG, Q4W
     Route: 058
     Dates: start: 20200707

REACTIONS (5)
  - Bronchiectasis [Unknown]
  - Illness [Unknown]
  - Blood pressure increased [Unknown]
  - Pain in extremity [Unknown]
  - Product administration error [Unknown]

NARRATIVE: CASE EVENT DATE: 20240301
